FAERS Safety Report 15395716 (Version 1)
Quarter: 2018Q3

REPORT INFORMATION
  Report Type: Spontaneous
  Country: US (occurrence: US)
  Receive Date: 20180912
  Receipt Date: 20180912
  Transmission Date: 20181010
  Serious: Yes (Life-Threatening, Hospitalization)
  Sender: FDA-Public Use
  Company Number: None

PATIENT
  Sex: Male

DRUGS (1)
  1. OCREVUS [Suspect]
     Active Substance: OCRELIZUMAB
     Indication: MULTIPLE SCLEROSIS
     Dosage: OTHER FREQUENCY:EVERY 6 MONTHS;?

REACTIONS (7)
  - Influenza like illness [None]
  - Facial pain [None]
  - Musculoskeletal pain [None]
  - Myalgia [None]
  - Pulmonary embolism [None]
  - Pain in jaw [None]
  - Dyspnoea [None]
